FAERS Safety Report 10994087 (Version 1)
Quarter: 2015Q2

REPORT INFORMATION
  Report Type: Spontaneous
  Country: FR (occurrence: FR)
  Receive Date: 20150407
  Receipt Date: 20150407
  Transmission Date: 20150821
  Serious: Yes (Other)
  Sender: FDA-Public Use
  Company Number: FR-PFIZER INC-2015040777

PATIENT
  Age: 61 Year
  Sex: Male
  Weight: 76 kg

DRUGS (2)
  1. KLIPAL [Concomitant]
     Active Substance: ACETAMINOPHEN\CODEINE PHOSPHATE
     Indication: BACK PAIN
     Dosage: 1 DF (600/50MG), 4X/DAY
     Route: 048
     Dates: start: 20141127
  2. LYRICA [Suspect]
     Active Substance: PREGABALIN
     Indication: NEURALGIA
     Dosage: 75 MG
     Route: 048
     Dates: start: 20150122, end: 20150127

REACTIONS (3)
  - Age-related macular degeneration [Unknown]
  - Visual acuity reduced [Unknown]
  - Disease progression [Unknown]

NARRATIVE: CASE EVENT DATE: 20150127
